FAERS Safety Report 10672985 (Version 1)
Quarter: 2014Q4

REPORT INFORMATION
  Report Type: Spontaneous
  Country: AR (occurrence: AR)
  Receive Date: 20141223
  Receipt Date: 20141223
  Transmission Date: 20150529
  Serious: Yes (Hospitalization)
  Sender: FDA-Public Use
  Company Number: AR-BIOMARINAP-AR-2014-105073

PATIENT
  Age: 5 Year
  Sex: Female

DRUGS (2)
  1. ALDURAZYME [Suspect]
     Active Substance: LARONIDASE
     Indication: MUCOPOLYSACCHARIDOSIS I
     Dosage: 0.58 MG/KG, UNK
     Route: 041
  2. ALDURAZYME [Suspect]
     Active Substance: LARONIDASE
     Dosage: 0.58 MG/KG, UNK
     Route: 042
     Dates: start: 2014, end: 201408

REACTIONS (2)
  - Asphyxia [Recovered/Resolved]
  - Hypertension [Recovered/Resolved]

NARRATIVE: CASE EVENT DATE: 201408
